FAERS Safety Report 7686709-5 (Version None)
Quarter: 2011Q3

REPORT INFORMATION
  Report Type: 
  Country: None (occurrence: None)
  Receive Date: 20110816
  Receipt Date: 20110808
  Transmission Date: 20111222
  Serious: Yes (Hospitalization)
  Sender: FDA-Public Use
  Company Number: US-AMGEN-USASP2011040639

PATIENT
  Age: 63 Year
  Sex: Female

DRUGS (13)
  1. POTASSIUM 99 [Concomitant]
     Dosage: 99 MG, UNK
     Route: 048
  2. PROVERA [Concomitant]
     Dosage: 10 MG, QD
     Route: 048
  3. PROPOFOL [Concomitant]
     Indication: SEDATION
  4. TRAMADOL HCL [Concomitant]
     Dosage: 100 MG, Q8H
  5. PREMARIN [Concomitant]
     Dosage: 0.625 MG, UNK
     Route: 048
  6. OMEPRAZOLE [Concomitant]
     Dosage: 20 MG, QD
     Route: 048
  7. AMLODIPINE BESYLATE [Concomitant]
     Dosage: 10 MG, QD
  8. ADVAIR DISKUS 100/50 [Concomitant]
     Dosage: UNK
     Route: 055
  9. NEUPOGEN [Suspect]
  10. HYDROCHLOROTHIAZIDE [Concomitant]
     Dosage: 25 MG, UNK
  11. VENTOLIN HFA [Concomitant]
     Dosage: 90 MG, BID
     Route: 055
  12. PROCRIT [Suspect]
     Indication: RENAL FAILURE CHRONIC
     Dosage: 10000 IU, UNK
     Route: 058
     Dates: start: 20110805
  13. LIPITOR [Concomitant]
     Dosage: 20 MG, QD

REACTIONS (4)
  - UPPER AIRWAY OBSTRUCTION [None]
  - HYPERTENSION [None]
  - DYSPNOEA [None]
  - LOCAL SWELLING [None]
